FAERS Safety Report 7509766-5 (Version None)
Quarter: 2011Q2

REPORT INFORMATION
  Report Type: 
  Country: None (occurrence: None)
  Receive Date: 20110527
  Receipt Date: 20110520
  Transmission Date: 20111010
  Serious: Yes (Hospitalization)
  Sender: FDA-Public Use
  Company Number: BR-MEDIMMUNE-MEDI-0011568

PATIENT
  Sex: Female
  Weight: 4.5 kg

DRUGS (13)
  1. SYNAGIS [Suspect]
  2. VITAMIN D [Concomitant]
     Indication: VITAMIN SUPPLEMENTATION
     Route: 048
     Dates: start: 20100601
  3. VITAMIN D [Concomitant]
  4. FUROSEMIDE [Concomitant]
     Indication: DIURETIC THERAPY
     Route: 048
     Dates: start: 20100528
  5. VITAMIN A [Concomitant]
     Indication: VITAMIN SUPPLEMENTATION
     Route: 048
     Dates: start: 20100601
  6. VITAMIN A [Concomitant]
  7. SYNAGIS [Suspect]
     Indication: CARDIAC DISORDER
     Route: 030
     Dates: start: 20100730
  8. FERROUS SULFATE TAB [Concomitant]
     Route: 048
     Dates: start: 20100601
  9. ASCORBIC ACID [Concomitant]
     Route: 048
     Dates: start: 20100601
  10. FUROSEMIDE [Concomitant]
  11. SPIRONOLACTONE [Concomitant]
     Route: 048
     Dates: start: 20100528
  12. SPIRONOLACTONE [Concomitant]
  13. DIGOXIN [Concomitant]
     Route: 048
     Dates: start: 20100528

REACTIONS (5)
  - COUGH [None]
  - WHEEZING [None]
  - INFLUENZA [None]
  - RHINORRHOEA [None]
  - PNEUMONIA [None]
